FAERS Safety Report 12059332 (Version 8)
Quarter: 2018Q4

REPORT INFORMATION
  Report Type: Spontaneous
  Country: US (occurrence: US)
  Receive Date: 20160210
  Receipt Date: 20181204
  Transmission Date: 20190204
  Serious: Yes (Life-Threatening, Other)
  Sender: FDA-Public Use
  Company Number: US-PFIZER INC-2016071559

PATIENT
  Age: 56 Year
  Sex: Female
  Weight: 97 kg

DRUGS (9)
  1. TACROLIMUS. [Suspect]
     Active Substance: TACROLIMUS
     Dosage: 0.1 MG AM, 0.5 MG PM
  2. LISINOPRIL. [Concomitant]
     Active Substance: LISINOPRIL
     Indication: HYPERTENSION
     Dosage: 20 MG, UNK
  3. LISINOPRIL. [Concomitant]
     Active Substance: LISINOPRIL
     Dosage: 40 MG, DAILY
  4. RELPAX [Suspect]
     Active Substance: ELETRIPTAN HYDROBROMIDE
     Indication: MIGRAINE
     Dosage: 20 MG, AS NEEDED (ONE TO TWO)
     Route: 048
  5. RELPAX [Suspect]
     Active Substance: ELETRIPTAN HYDROBROMIDE
     Dosage: 20 MG, AS NEEDED (TWICE DAILY (BID) PRN)
     Route: 048
  6. RELPAX [Suspect]
     Active Substance: ELETRIPTAN HYDROBROMIDE
     Dosage: 20 MG AS NEEDED (MAY REPEAT DOSE AFTER 2 HOURS. NO MORE THAN TWO DOSES WITHIN A 24 HOUR PERIOD)
     Route: 048
     Dates: start: 20181113
  7. TACROLIMUS. [Suspect]
     Active Substance: TACROLIMUS
     Indication: LIVER TRANSPLANT
     Dosage: 1.5 MG, DAILY (1 MG IN THE MORNING AND 0.5MG IN THE EVENING)
  8. RELPAX [Suspect]
     Active Substance: ELETRIPTAN HYDROBROMIDE
     Indication: HEADACHE
     Dosage: 20 MG, AS NEEDED (HA Q2HR, DO NOT EXCEED 04/DAY)
     Route: 048
  9. RELPAX [Suspect]
     Active Substance: ELETRIPTAN HYDROBROMIDE
     Dosage: 20 MG, AS NEEDED (MAX 2 DOSES IN 24 HOURS)
     Route: 048

REACTIONS (11)
  - Vomiting [Not Recovered/Not Resolved]
  - Thinking abnormal [Unknown]
  - Disease progression [Not Recovered/Not Resolved]
  - Pain [Not Recovered/Not Resolved]
  - Retching [Unknown]
  - Loss of personal independence in daily activities [Unknown]
  - Malaise [Not Recovered/Not Resolved]
  - Eating disorder [Unknown]
  - Nausea [Unknown]
  - Migraine [Not Recovered/Not Resolved]
  - Drug intolerance [Unknown]
